FAERS Safety Report 23798913 (Version 1)
Quarter: 2024Q2

REPORT INFORMATION
  Report Type: Spontaneous
  Country: US (occurrence: None)
  Receive Date: 20240427
  Receipt Date: 20240427
  Transmission Date: 20240716
  Serious: Yes (Hospitalization)
  Sender: FDA-Public Use
  Company Number: None

PATIENT
  Age: 81 Year
  Sex: Male

DRUGS (1)
  1. ALOGLIPTIN [Suspect]
     Active Substance: ALOGLIPTIN
     Dosage: FREQUENCY : DAILY;?
     Route: 048
     Dates: start: 20220412, end: 20230313

REACTIONS (3)
  - Pancreatitis [None]
  - Chest pain [None]
  - Eructation [None]

NARRATIVE: CASE EVENT DATE: 20230313
